FAERS Safety Report 7863270-3 (Version None)
Quarter: 2011Q4

REPORT INFORMATION
  Report Type: 
  Country: None (occurrence: None)
  Receive Date: 20111027
  Receipt Date: 20101201
  Transmission Date: 20120403
  Serious: No
  Sender: FDA-Public Use
  Company Number: US-AMGEN-KDL326398

PATIENT
  Age: 61 Year
  Sex: Female

DRUGS (2)
  1. ENBREL [Suspect]
     Indication: POLYMYALGIA RHEUMATICA
     Dosage: 25 MG, 2 TIMES/WK
     Route: 058
     Dates: start: 20080930, end: 20100930
  2. ENBREL [Suspect]
     Indication: FIBROMYALGIA

REACTIONS (16)
  - HEADACHE [None]
  - UPPER RESPIRATORY TRACT CONGESTION [None]
  - HYPOPNOEA [None]
  - OROPHARYNGEAL PAIN [None]
  - CHILLS [None]
  - DYSPHAGIA [None]
  - DYSPHONIA [None]
  - HYPERHIDROSIS [None]
  - BACK PAIN [None]
  - CHEST PAIN [None]
  - MALAISE [None]
  - COUGH [None]
  - NASAL CONGESTION [None]
  - RHINORRHOEA [None]
  - PAIN [None]
  - DYSPNOEA [None]
